FAERS Safety Report 4772808-4 (Version None)
Quarter: 2005Q3

REPORT INFORMATION
  Report Type: 
  Country: None (occurrence: None)
  Receive Date: 20050915
  Receipt Date: 20050915
  Transmission Date: 20060218
  Serious: Yes (Hospitalization)
  Sender: FDA-Public Use
  Company Number: None

PATIENT
  Age: 64 Year
  Sex: Female
  Weight: 116.1208 kg

DRUGS (6)
  1. OXYCODONE AND ACETAMINOPHEN [Suspect]
     Indication: PAIN
     Dosage: 5/325 2 PO
     Route: 048
     Dates: start: 20050510
  2. MEPERIDINE HCL [Suspect]
     Indication: PAIN
     Dosage: 50 MG IV IN PACU
     Route: 042
     Dates: start: 20050510
  3. METFORMIN HCL [Concomitant]
  4. PREVACID [Concomitant]
  5. FLOVENT [Concomitant]
  6. ALBUTEROL [Concomitant]

REACTIONS (7)
  - ANGIONEUROTIC OEDEMA [None]
  - CONFUSIONAL STATE [None]
  - DISORIENTATION [None]
  - HYPERSOMNIA [None]
  - OXYGEN SATURATION DECREASED [None]
  - SWELLING FACE [None]
  - SWOLLEN TONGUE [None]
